FAERS Safety Report 4743596-2 (Version None)
Quarter: 2005Q3

REPORT INFORMATION
  Report Type: 
  Country: None (occurrence: None)
  Receive Date: 20050812
  Receipt Date: 20050801
  Transmission Date: 20060218
  Serious: Yes (Other)
  Sender: FDA-Public Use
  Company Number: 2005GB01480

PATIENT
  Age: 56 Year
  Weight: 111.9 kg

DRUGS (16)
  1. BUDESONIDE [Suspect]
     Indication: ASTHMA
     Route: 055
     Dates: start: 20050606, end: 20050617
  2. CLARITHROMYCIN [Concomitant]
     Indication: LOWER RESPIRATORY TRACT INFECTION
     Route: 048
     Dates: start: 20050427, end: 20050503
  3. ALBUTEROL SULFATE HFA [Concomitant]
     Indication: ASTHMA
     Route: 055
     Dates: start: 20050509
  4. EUMOVATE [Concomitant]
     Indication: SUNBURN
     Route: 061
     Dates: start: 20050603
  5. HYDROCORTISONE [Concomitant]
     Indication: SUNBURN
     Route: 061
     Dates: start: 20050603
  6. ERYTHROMYCIN [Concomitant]
     Indication: SUNBURN
     Route: 048
     Dates: start: 20050603
  7. NYSTATIN [Concomitant]
     Indication: ORAL CANDIDIASIS
     Route: 048
     Dates: start: 20050617, end: 20050628
  8. BECONASE [Concomitant]
     Indication: SEASONAL ALLERGY
     Route: 055
     Dates: start: 19980101
  9. ASPIRIN [Concomitant]
     Indication: CORONARY ARTERY DISEASE
     Route: 048
     Dates: start: 20010101
  10. ALLOPURINOL [Concomitant]
     Route: 048
     Dates: start: 20020101
  11. BENDROFLUAZIDE [Concomitant]
     Indication: CORONARY ARTERY DISEASE
     Route: 048
     Dates: start: 20020101
  12. BENDROFLUAZIDE [Concomitant]
     Indication: HYPERTENSION
     Route: 048
     Dates: start: 20020101
  13. DICLOFENAC SODIUM [Concomitant]
     Route: 048
     Dates: start: 20020101
  14. LISINOPRIL [Concomitant]
     Route: 048
  15. PARACETAMOL [Concomitant]
     Route: 048
  16. OILATUM [Concomitant]
     Route: 061

REACTIONS (5)
  - COUGH [None]
  - PARAESTHESIA [None]
  - PHARYNGEAL OEDEMA [None]
  - PHARYNGOLARYNGEAL PAIN [None]
  - WHEEZING [None]
